FAERS Safety Report 21397334 (Version 1)
Quarter: 2022Q3

REPORT INFORMATION
  Report Type: Spontaneous
  Country: US (occurrence: None)
  Receive Date: 20220929
  Receipt Date: 20220929
  Transmission Date: 20221026
  Serious: No
  Sender: FDA-Public Use
  Company Number: None

PATIENT
  Age: 85 Year
  Sex: Female
  Weight: 68.95 kg

DRUGS (4)
  1. ORENCIA [Suspect]
     Active Substance: ABATACEPT
     Indication: Rheumatoid arthritis
     Dosage: FREQUENCY : WEEKLY;?
     Route: 058
     Dates: start: 202208
  2. ORENCIA [Suspect]
     Active Substance: ABATACEPT
     Indication: Senile osteoporosis
  3. ORENCIA [Suspect]
     Active Substance: ABATACEPT
     Indication: Osteoarthritis
  4. ORENCIA [Suspect]
     Active Substance: ABATACEPT
     Indication: Osteoarthritis

REACTIONS (2)
  - Illness [None]
  - Therapy interrupted [None]
